FAERS Safety Report 21778272 (Version 1)
Quarter: 2022Q4

REPORT INFORMATION
  Report Type: Spontaneous
  Country: CN (occurrence: CN)
  Receive Date: 20221226
  Receipt Date: 20221226
  Transmission Date: 20230112
  Serious: Yes (Hospitalization, Other)
  Sender: FDA-Public Use
  Company Number: CN-ASPEN-GLO2022CN007715

PATIENT

DRUGS (2)
  1. LEUKERAN [Suspect]
     Active Substance: CHLORAMBUCIL
     Indication: Chronic lymphocytic leukaemia
     Dosage: 2 MG, QOD FOR LAST 3 YEARS
     Route: 048
     Dates: end: 20210531
  2. INTERFERON [Suspect]
     Active Substance: INTERFERON
     Indication: Chronic lymphocytic leukaemia
     Route: 065

REACTIONS (1)
  - Hepatitis B reactivation [Recovering/Resolving]

NARRATIVE: CASE EVENT DATE: 20210531
